FAERS Safety Report 10929910 (Version 2)
Quarter: 2016Q4

REPORT INFORMATION
  Report Type: Spontaneous
  Country: CA (occurrence: CA)
  Receive Date: 20150319
  Receipt Date: 20161230
  Transmission Date: 20170206
  Serious: Yes (Other)
  Sender: FDA-Public Use
  Company Number: CA-SA-2015SA033394

PATIENT
  Sex: Female

DRUGS (21)
  1. LYRICA [Suspect]
     Active Substance: PREGABALIN
     Route: 065
  2. NEXIUM [Suspect]
     Active Substance: ESOMEPRAZOLE MAGNESIUM
     Route: 065
  3. METHYLPREDNISOLONE. [Concomitant]
     Active Substance: METHYLPREDNISOLONE
  4. ALTACE [Concomitant]
     Active Substance: RAMIPRIL
  5. APO-HYDRO [Concomitant]
     Active Substance: HYDROCHLOROTHIAZIDE
  6. PREDNISONE. [Concomitant]
     Active Substance: PREDNISONE
  7. ATACAND [Concomitant]
     Active Substance: CANDESARTAN CILEXETIL
  8. DOMPERIDONE [Suspect]
     Active Substance: DOMPERIDONE
     Route: 065
  9. SYNTHROID [Concomitant]
     Active Substance: LEVOTHYROXINE SODIUM
  10. ELTROXIN [Concomitant]
     Active Substance: LEVOTHYROXINE
  11. ERGOCALCIFEROL. [Concomitant]
     Active Substance: ERGOCALCIFEROL
  12. EZETROL [Concomitant]
     Active Substance: EZETIMIBE
  13. LISINOPRIL. [Concomitant]
     Active Substance: LISINOPRIL
  14. DEPO-MEDROL [Suspect]
     Active Substance: METHYLPREDNISOLONE ACETATE
     Dosage: FORM: SUSPENSION INTRAARTICULAR
     Route: 014
  15. ROSUVASTATIN CALCIUM. [Concomitant]
     Active Substance: ROSUVASTATIN CALCIUM
  16. JANUVIA [Concomitant]
     Active Substance: SITAGLIPTIN PHOSPHATE
  17. LANTUS [Suspect]
     Active Substance: INSULIN GLARGINE
     Route: 058
  18. ACETAMINOPHEN. [Concomitant]
     Active Substance: ACETAMINOPHEN
  19. RITUXAN [Suspect]
     Active Substance: RITUXIMAB
     Indication: SJOGREN^S SYNDROME
     Route: 042
  20. DIAMICRON [Suspect]
     Active Substance: GLICLAZIDE
     Route: 065
  21. AMLODIPINE BESILATE [Concomitant]
     Active Substance: AMLODIPINE BESYLATE

REACTIONS (3)
  - Arthritis [Unknown]
  - Condition aggravated [Unknown]
  - Coronary artery occlusion [Unknown]
